FAERS Safety Report 25605055 (Version 2)
Quarter: 2025Q3

REPORT INFORMATION
  Report Type: Report from Study
  Country: US (occurrence: US)
  Receive Date: 20250725
  Receipt Date: 20250902
  Transmission Date: 20251020
  Serious: Yes (Other)
  Sender: TAKEDA
  Company Number: US-TAKEDA-2024TUS089505

PATIENT
  Sex: Female
  Weight: 90 kg

DRUGS (19)
  1. TEDUGLUTIDE [Suspect]
     Active Substance: TEDUGLUTIDE
     Indication: Short-bowel syndrome
     Dosage: 2.1 MILLIGRAM, QD
  2. TEDUGLUTIDE [Suspect]
     Active Substance: TEDUGLUTIDE
     Dosage: 2.1 MILLIGRAM, QD
  3. TEDUGLUTIDE [Suspect]
     Active Substance: TEDUGLUTIDE
     Dosage: 2.1 MILLIGRAM, QD
  4. TEDUGLUTIDE [Suspect]
     Active Substance: TEDUGLUTIDE
  5. HYDROMORPHONE HCL [Concomitant]
     Active Substance: HYDROMORPHONE HYDROCHLORIDE
  6. CREON [Concomitant]
     Active Substance: PANCRELIPASE AMYLASE\PANCRELIPASE LIPASE\PANCRELIPASE PROTEASE
  7. CLONIDINE [Concomitant]
     Active Substance: CLONIDINE
     Dosage: 0.2 MILLIGRAM, QD
  8. MIRTAZAPINE [Concomitant]
     Active Substance: MIRTAZAPINE
  9. TRAZODONE HCL [Concomitant]
     Active Substance: TRAZODONE HYDROCHLORIDE
  10. MARINOL [Concomitant]
     Active Substance: DRONABINOL
  11. ZINC [Concomitant]
     Active Substance: ZINC
  12. PLAQUENIL [Concomitant]
     Active Substance: HYDROXYCHLOROQUINE SULFATE
  13. DULERA [Concomitant]
     Active Substance: FORMOTEROL FUMARATE DIHYDRATE\MOMETASONE FUROATE
  14. MINERALS\VITAMINS [Concomitant]
     Active Substance: MINERALS\VITAMINS
  15. SEVELAMER CARBONATE [Concomitant]
     Active Substance: SEVELAMER CARBONATE
  16. IMODIUM MULTI-SYMPTOM RELIEF [Concomitant]
     Active Substance: DIMETHICONE\LOPERAMIDE HYDROCHLORIDE
  17. VITAMIN C [Concomitant]
     Active Substance: ASCORBIC ACID
  18. ATROPINE\DIPHENOXYLATE [Concomitant]
     Active Substance: ATROPINE\DIPHENOXYLATE
  19. CYCLOBENZAPRINE HYDROCHLORIDE [Concomitant]
     Active Substance: CYCLOBENZAPRINE HYDROCHLORIDE

REACTIONS (6)
  - Systemic lupus erythematosus [Unknown]
  - Immune system disorder [Unknown]
  - Feeling abnormal [Unknown]
  - Product use issue [Unknown]
  - Illness [Unknown]
  - Dropped head syndrome [Unknown]
